FAERS Safety Report 6307790-1 (Version None)
Quarter: 2009Q3

REPORT INFORMATION
  Report Type: 
  Country: None (occurrence: None)
  Receive Date: 20090813
  Receipt Date: 20090731
  Transmission Date: 20100115
  Serious: Yes (Life-Threatening)
  Sender: FDA-Public Use
  Company Number: A0800292A

PATIENT
  Age: 60 Year
  Sex: Male

DRUGS (4)
  1. TOSITUMOMAB [Suspect]
     Indication: NON-HODGKIN'S LYMPHOMA
     Dosage: 450MG SINGLE DOSE
     Route: 042
     Dates: start: 19970402, end: 19970402
  2. IODINE I 131 TOSITUMOMAB [Suspect]
     Indication: NON-HODGKIN'S LYMPHOMA
     Dosage: 35MG SINGLE DOSE
     Route: 042
     Dates: start: 19970402, end: 19970402
  3. TOSITUMOMAB [Suspect]
     Dosage: 450MG SINGLE DOSE
     Route: 042
     Dates: start: 19970409, end: 19970409
  4. TOSITUMOMAB [Suspect]
     Dosage: 99.128MCI SINGLE DOSE
     Route: 042
     Dates: start: 19970409, end: 19970409

REACTIONS (1)
  - RENAL CELL CARCINOMA [None]
